FAERS Safety Report 5964299-2 (Version None)
Quarter: 2008Q4

REPORT INFORMATION
  Report Type: 
  Country: None (occurrence: None)
  Receive Date: 20081124
  Receipt Date: 20081119
  Transmission Date: 20090506
  Serious: Yes (Hospitalization, Other)
  Sender: FDA-Public Use
  Company Number: CA-PFIZER INC-2008087243

PATIENT
  Age: 37 Year
  Sex: Female

DRUGS (6)
  1. SERTRALINE [Suspect]
     Indication: BIPOLAR I DISORDER
     Route: 048
  2. SERTRALINE [Suspect]
     Dosage: DAILY DOSE:100MG-FREQ:FREQUENCY: ONCE DAILY
  3. ZOPICLONE [Suspect]
     Indication: BIPOLAR I DISORDER
     Route: 048
  4. DIVALPROEX SODIUM [Suspect]
     Indication: BIPOLAR I DISORDER
     Route: 048
  5. RISPERIDONE [Suspect]
     Indication: BIPOLAR I DISORDER
     Route: 048
  6. QUETIAPINE FUMARATE [Suspect]
     Indication: BIPOLAR I DISORDER
     Route: 048

REACTIONS (10)
  - AGITATION [None]
  - ANHEDONIA [None]
  - ANXIETY [None]
  - CRYING [None]
  - DECREASED APPETITE [None]
  - HYPOMANIA [None]
  - INSOMNIA [None]
  - JUDGEMENT IMPAIRED [None]
  - SOCIAL AVOIDANT BEHAVIOUR [None]
  - SUICIDAL IDEATION [None]
